FAERS Safety Report 5675972-8 (Version None)
Quarter: 2008Q1

REPORT INFORMATION
  Report Type: 
  Country: None (occurrence: None)
  Receive Date: 20080318
  Receipt Date: 20080307
  Transmission Date: 20080703
  Serious: Yes (Other)
  Sender: FDA-Public Use
  Company Number: 2008SP000547

PATIENT
  Age: 49 Year
  Sex: Male
  Weight: 181.4388 kg

DRUGS (3)
  1. LUNESTA [Suspect]
     Indication: INSOMNIA
     Dosage: 3 MG; 1X; ORAL
     Route: 048
     Dates: start: 20080304, end: 20080304
  2. CYMBALTA [Concomitant]
  3. REQUIP [Concomitant]

REACTIONS (1)
  - CONVULSION [None]
